FAERS Safety Report 26122371 (Version 1)
Quarter: 2025Q4

REPORT INFORMATION
  Report Type: Spontaneous
  Country: EU (occurrence: EU)
  Receive Date: 20251204
  Receipt Date: 20251204
  Transmission Date: 20260118
  Serious: Yes (Hospitalization, Other)
  Sender: BAUSCH AND LOMB
  Company Number: EU-BAUSCH-BH-2025-021515

PATIENT
  Age: 55 Year
  Sex: Male

DRUGS (9)
  1. DEXAMETHASONE [Suspect]
     Active Substance: DEXAMETHASONE
     Indication: Plasma cell myeloma
     Route: 065
     Dates: start: 202405
  2. DEXAMETHASONE [Suspect]
     Active Substance: DEXAMETHASONE
     Route: 065
     Dates: start: 202409, end: 202411
  3. REVLIMID [Suspect]
     Active Substance: LENALIDOMIDE
     Indication: Plasma cell myeloma
     Route: 065
     Dates: start: 202405
  4. REVLIMID [Suspect]
     Active Substance: LENALIDOMIDE
     Route: 065
     Dates: start: 202409, end: 202411
  5. REVLIMID [Suspect]
     Active Substance: LENALIDOMIDE
     Dosage: DOSE RE-INTRODUCED
     Route: 065
  6. DARATUMUMAB [Suspect]
     Active Substance: DARATUMUMAB
     Indication: Plasma cell myeloma
     Route: 065
     Dates: start: 202405
  7. DARATUMUMAB [Suspect]
     Active Substance: DARATUMUMAB
     Route: 065
     Dates: start: 202409, end: 202411
  8. DARATUMUMAB [Suspect]
     Active Substance: DARATUMUMAB
     Dosage: DOSE RE-INTRODUCED
     Route: 065
  9. ZOMETA [Suspect]
     Active Substance: ZOLEDRONIC ACID
     Indication: Plasma cell myeloma
     Route: 065
     Dates: start: 202405

REACTIONS (2)
  - Bone lesion [Unknown]
  - Plasma cell myeloma [Unknown]

NARRATIVE: CASE EVENT DATE: 20240101
